FAERS Safety Report 9825172 (Version 1)
Quarter: 2013Q4

REPORT INFORMATION
  Report Type: Spontaneous
  Country: GB (occurrence: None)
  Receive Date: 20131031
  Receipt Date: 20131031
  Transmission Date: 20140711
  Serious: Yes (Other)
  Sender: FDA-Public Use
  Company Number: 2012S10000125

PATIENT
  Age: 92 Year
  Sex: Female

DRUGS (2)
  1. KRYSTEXXA [Suspect]
     Indication: PRODUCT USED FOR UNKNOWN INDICATION
     Dosage: IV
     Route: 042
  2. DIGOXIN [Concomitant]

REACTIONS (1)
  - Infusion related reaction [None]
